FAERS Safety Report 9518797 (Version 1)
Quarter: 2013Q3

REPORT INFORMATION
  Report Type: Spontaneous
  Country: MX (occurrence: MX)
  Receive Date: 20130912
  Receipt Date: 20130912
  Transmission Date: 20140515
  Serious: Yes (Death)
  Sender: FDA-Public Use
  Company Number: MX-PFIZER INC-2013262745

PATIENT
  Age: 75 Year
  Sex: Female
  Weight: 86 kg

DRUGS (4)
  1. TAFIL [Suspect]
     Indication: ANXIETY
     Dosage: 0.25 MG, SINGLE
     Route: 048
     Dates: start: 20130705, end: 20130705
  2. SPIRIVA [Concomitant]
     Indication: PULMONARY ARTERIAL HYPERTENSION
     Dosage: UNK
     Route: 045
  3. CIPROFLOXACIN [Concomitant]
     Indication: PNEUMOCOCCAL INFECTION
     Dosage: UNK
     Route: 042
  4. OXYGEN [Concomitant]
     Dosage: 8 HOURS, 1X/DAY

REACTIONS (1)
  - Death [Fatal]
